FAERS Safety Report 5738339-X (Version None)
Quarter: 2008Q2

REPORT INFORMATION
  Report Type: 
  Country: None (occurrence: None)
  Receive Date: 20080513
  Receipt Date: 20080429
  Transmission Date: 20081010
  Serious: Yes (Disabling)
  Sender: FDA-Public Use
  Company Number: APP200800149

PATIENT
  Age: 35 Year
  Sex: Male

DRUGS (3)
  1. SENSORCAINE [Suspect]
     Indication: MUSCULOSKELETAL PAIN
     Dosage: 27 ML, INJECTION
     Dates: start: 20040927, end: 20040927
  2. XYLOCAINE W/ EPINEPHRENE [Suspect]
     Indication: MUSCULOSKELETAL PAIN
     Dosage: 270 ML, 5 ML/HR
     Dates: start: 20040927
  3. ON-Q PAIN BUSTER PAIN PUMP [Suspect]
     Indication: MUSCULOSKELETAL PAIN
     Dates: start: 20040927

REACTIONS (3)
  - CHONDROLYSIS [None]
  - MOVEMENT DISORDER [None]
  - MUSCULOSKELETAL PAIN [None]
